FAERS Safety Report 4816403-7 (Version None)
Quarter: 2005Q4

REPORT INFORMATION
  Report Type: 
  Country: None (occurrence: None)
  Receive Date: 20051028
  Receipt Date: 20051019
  Transmission Date: 20060501
  Serious: Yes (Hospitalization, Disabling)
  Sender: FDA-Public Use
  Company Number: 2005135429

PATIENT
  Age: 62 Year
  Sex: Male
  Weight: 52.1637 kg

DRUGS (14)
  1. LIPITOR [Suspect]
     Indication: BLOOD CHOLESTEROL
     Dosage: 80 MG (80 MG, 1 IN 1 D), ORAL
     Route: 048
     Dates: start: 20040901
  2. LIPITOR [Suspect]
     Indication: CEREBROVASCULAR ACCIDENT
     Dosage: 80 MG (80 MG, 1 IN 1 D), ORAL
     Route: 048
     Dates: start: 20040901
  3. COVERSYL (PERINDOPRIL) [Suspect]
     Indication: ILL-DEFINED DISORDER
  4. COLGOUT (COLCHICINE) [Concomitant]
  5. VERACAPS SR (VERAPAMIL HYDROCHLORIDE) [Concomitant]
  6. MICARDIS HCT [Concomitant]
  7. LOSEC (OMEPRAZOLE) [Concomitant]
  8. DIABEX (METFORMIN HYDROCHLORIDE) [Concomitant]
  9. NOVOMIX (INSULIN ASPART) [Concomitant]
  10. ASPIRIN [Concomitant]
  11. PLAVIX [Concomitant]
  12. OMEGA 3 (FISH OIL) [Concomitant]
  13. SAW PALMETTO (SAW PALMETTO) [Concomitant]
  14. GINGKOMIN (GINKGO BILOBA) [Concomitant]

REACTIONS (8)
  - AMNESIA [None]
  - CONDITION AGGRAVATED [None]
  - DISTURBANCE IN ATTENTION [None]
  - DIZZINESS [None]
  - FATIGUE [None]
  - HYPOTENSION [None]
  - SYNCOPE [None]
  - VISUAL DISTURBANCE [None]
